FAERS Safety Report 9123216 (Version 1)
Quarter: 2013Q1

REPORT INFORMATION
  Report Type: Spontaneous
  Country: GB (occurrence: None)
  Receive Date: 20130129
  Receipt Date: 20130129
  Transmission Date: 20140127
  Serious: Yes (Other)
  Sender: FDA-Public Use
  Company Number: 2013AP000693

PATIENT
  Age: 53 Year
  Sex: Female

DRUGS (10)
  1. OMEPRAZOLE (OMEPRAZOLE) [Suspect]
     Indication: PROPHYLAXIS AGAINST GASTROINTESTINAL ULCER
     Route: 048
  2. CO CODAMOL (PANADEINE CO) [Concomitant]
  3. DICYCLOVERINE (DICYCLOVERINE) [Concomitant]
  4. DOMPERIDONE (DOMPERIDONE) [Concomitant]
  5. FEXOFENADINE [Concomitant]
  6. NAPROXEN (NAPROXEN) [Concomitant]
  7. PEPPERMINT OIL (MENTHA X PIPERITA OIL) [Concomitant]
  8. PIZOTIFEN (PIZOTIFEN) [Concomitant]
  9. TIOTROPIUM (TIOTROPIUM) [Concomitant]
  10. ZOLMITRIPTAN (ZOLMITRIPTAN) [Concomitant]

REACTIONS (1)
  - Breast mass [None]
